FAERS Safety Report 23259890 (Version 2)
Quarter: 2023Q4

REPORT INFORMATION
  Report Type: Report from Study
  Country: CN (occurrence: CN)
  Receive Date: 20231204
  Receipt Date: 20231212
  Transmission Date: 20240109
  Serious: Yes (Hospitalization)
  Sender: FDA-Public Use
  Company Number: CN-Eisai-EC-2023-154139

PATIENT
  Age: 62 Year
  Sex: Male
  Weight: 56 kg

DRUGS (4)
  1. LENVATINIB [Suspect]
     Active Substance: LENVATINIB
     Indication: Hepatocellular carcinoma
     Route: 048
     Dates: start: 20210516, end: 20210913
  2. LENVATINIB [Suspect]
     Active Substance: LENVATINIB
     Route: 048
     Dates: start: 20210929
  3. TORIPALIMAB [Suspect]
     Active Substance: TORIPALIMAB
     Indication: Hepatocellular carcinoma
     Dosage: JS001/PLACEBO
     Route: 041
     Dates: start: 20210516, end: 20210922
  4. TORIPALIMAB [Suspect]
     Active Substance: TORIPALIMAB
     Dosage: JS001/PLACEBO
     Route: 041
     Dates: start: 20210929

REACTIONS (2)
  - Bronchial haemorrhage [Recovered/Resolved with Sequelae]
  - Decreased appetite [Recovering/Resolving]

NARRATIVE: CASE EVENT DATE: 20210912
